FAERS Safety Report 4716693-5 (Version None)
Quarter: 2005Q3

REPORT INFORMATION
  Report Type: 
  Country: None (occurrence: None)
  Receive Date: 20050714
  Receipt Date: 20050708
  Transmission Date: 20060218
  Serious: No
  Sender: FDA-Public Use
  Company Number: TAP2005Q01148

PATIENT
  Age: 35 Year
  Sex: Female
  Weight: 71.8498 kg

DRUGS (3)
  1. PREVACID [Suspect]
     Dosage: 15 MG, ORAL
     Route: 048
  2. TUMS (CALCIUM CARBONATE) [Suspect]
     Indication: STOMACH DISCOMFORT
     Dosage: ORAL
     Route: 048
     Dates: start: 20050605
  3. ORAL CONTRACEPTIVE (ORAL CONTRACEPTIVE NOS) [Concomitant]

REACTIONS (13)
  - ABDOMINAL PAIN UPPER [None]
  - AURICULAR SWELLING [None]
  - DIARRHOEA [None]
  - DRUG INTERACTION [None]
  - EAR DISCOMFORT [None]
  - FATIGUE [None]
  - GENERALISED ERYTHEMA [None]
  - LOSS OF CONSCIOUSNESS [None]
  - MENTAL IMPAIRMENT [None]
  - PRURITUS GENERALISED [None]
  - RETCHING [None]
  - SWELLING FACE [None]
  - VISION BLURRED [None]
